FAERS Safety Report 22600646 (Version 1)
Quarter: 2023Q2

REPORT INFORMATION
  Report Type: Spontaneous
  Country: US (occurrence: US)
  Receive Date: 20230614
  Receipt Date: 20230614
  Transmission Date: 20230722
  Serious: No
  Sender: FDA-Public Use
  Company Number: US-ABBVIE-5282042

PATIENT
  Sex: Female

DRUGS (2)
  1. ARMOUR THYROID [Suspect]
     Active Substance: THYROID, PORCINE
     Indication: Hypothyroidism
     Route: 048
  2. CLOZAPINE [Concomitant]
     Active Substance: CLOZAPINE
     Indication: Anxiety

REACTIONS (3)
  - Anxiety [Unknown]
  - Nightmare [Unknown]
  - Nausea [Unknown]
